FAERS Safety Report 9727952 (Version 3)
Quarter: 2013Q4

REPORT INFORMATION
  Report Type: Report from Study
  Country: CA (occurrence: CA)
  Receive Date: 20131204
  Receipt Date: 20131211
  Transmission Date: 20140711
  Serious: Yes (Other)
  Sender: FDA-Public Use
  Company Number: CA-ROCHE-1149314

PATIENT
  Age: 64 Year
  Sex: Male
  Weight: 110.7 kg

DRUGS (10)
  1. RITUXAN [Suspect]
     Indication: RHEUMATOID ARTHRITIS
     Dosage: DAY 1 AND DAY 15
     Route: 042
     Dates: start: 20110711
  2. PREDNISONE [Concomitant]
  3. ATORVASTATIN [Concomitant]
  4. SENOKOT [Concomitant]
  5. DOCUSATE SODIUM [Concomitant]
  6. ASAPHEN [Concomitant]
     Route: 065
  7. ACETAMINOPHEN [Concomitant]
     Indication: PREMEDICATION
     Route: 048
     Dates: start: 20110711
  8. DIPHENHYDRAMINE HCL [Concomitant]
     Indication: PREMEDICATION
     Route: 048
     Dates: start: 20110711
  9. METHYLPREDNISOLONE [Concomitant]
     Indication: PREMEDICATION
     Route: 042
     Dates: start: 20110711
  10. PANTOPRAZOLE [Concomitant]

REACTIONS (4)
  - Diabetes mellitus [Unknown]
  - Herpes zoster [Not Recovered/Not Resolved]
  - Blood pressure increased [Recovered/Resolved]
  - Weight increased [Unknown]
